FAERS Safety Report 20756708 (Version 1)
Quarter: 2022Q2

REPORT INFORMATION
  Report Type: Report from Study
  Country: US (occurrence: US)
  Receive Date: 20220427
  Receipt Date: 20220427
  Transmission Date: 20220721
  Serious: Yes (Other)
  Sender: FDA-Public Use
  Company Number: US-BAYER-2022A059568

PATIENT
  Age: 81 Year
  Sex: Female

DRUGS (15)
  1. MICONAZOLE [Suspect]
     Active Substance: MICONAZOLE
     Dosage: UNK
  2. PALBOCICLIB [Suspect]
     Active Substance: PALBOCICLIB
     Dosage: UNK
  3. FULVESTRANT [Suspect]
     Active Substance: FULVESTRANT
  4. LETROZOLE [Suspect]
     Active Substance: LETROZOLE
  5. ATORVASTATIN [Suspect]
     Active Substance: ATORVASTATIN
  6. CEFTAZIDIME [Suspect]
     Active Substance: CEFTAZIDIME
  7. EPOETIN ALFA [Suspect]
     Active Substance: ERYTHROPOIETIN
  8. INSULIN NOS [Suspect]
     Active Substance: INSULIN NOS
  9. METOPROLOL [Suspect]
     Active Substance: METOPROLOL
  10. MONTELUKAST [Suspect]
     Active Substance: MONTELUKAST SODIUM
  11. QUETIAPINE [Suspect]
     Active Substance: QUETIAPINE
  12. ALPRAZOLAM [Suspect]
     Active Substance: ALPRAZOLAM
  13. MELATONIN [Suspect]
     Active Substance: MELATONIN
  14. ONDANSETRON [Suspect]
     Active Substance: ONDANSETRON
  15. TRAMADOL [Suspect]
     Active Substance: TRAMADOL

REACTIONS (1)
  - Renal tubular necrosis [None]
